FAERS Safety Report 7278249-2 (Version None)
Quarter: 2011Q1

REPORT INFORMATION
  Report Type: 
  Country: None (occurrence: None)
  Receive Date: 20110207
  Receipt Date: 20110119
  Transmission Date: 20110831
  Serious: No
  Sender: FDA-Public Use
  Company Number: US-B.I. PHARMACEUTICALS,INC./RIDGEFIELD-2011-BP-02039BP

PATIENT
  Age: 82 Year
  Sex: Female

DRUGS (15)
  1. LISINOPRIL [Concomitant]
     Indication: HYPERTENSION
     Dosage: 5 MG
     Route: 048
     Dates: start: 20100901
  2. OMEPRAZOLE [Concomitant]
     Indication: DYSPEPSIA
     Dosage: 20 MG
     Route: 048
     Dates: start: 20070101
  3. ROPINIROLE [Concomitant]
     Indication: RESTLESS LEGS SYNDROME
     Dosage: 1 MG
     Route: 048
     Dates: start: 20100101
  4. LASIX [Concomitant]
     Indication: FLUID RETENTION
     Route: 048
     Dates: start: 20100901
  5. ASPIRIN [Concomitant]
     Indication: PROPHYLAXIS
     Dosage: 81 MG
     Route: 048
  6. PRADAXA [Suspect]
     Indication: ATRIAL FIBRILLATION
     Dosage: 300 MG
     Route: 048
     Dates: start: 20110108
  7. CALCIUM W/ D [Concomitant]
     Indication: BONE DISORDER
     Route: 048
  8. VITAMIN E [Concomitant]
     Indication: PROPHYLAXIS
     Route: 048
  9. LASIX [Concomitant]
     Indication: DYSPNOEA
  10. MAGNESIUM [Concomitant]
     Indication: PROPHYLAXIS
     Route: 048
  11. VITAMIN D [Concomitant]
     Indication: PROPHYLAXIS
     Dosage: 2000 U
     Route: 048
  12. ASCORBIC ACID [Concomitant]
     Indication: PROPHYLAXIS
     Route: 048
  13. SIMVASTATIN [Concomitant]
     Indication: BLOOD CHOLESTEROL INCREASED
     Dosage: 40 MG
     Route: 048
  14. GABAPENTIN [Concomitant]
     Indication: NEUROPATHY PERIPHERAL
     Dosage: 900 MG
     Route: 048
  15. EXTRA STRENGTH TYLENOL [Concomitant]
     Indication: PAIN
     Dosage: 1000 MG
     Route: 048
     Dates: start: 20100901

REACTIONS (2)
  - FALL [None]
  - CONTUSION [None]
